FAERS Safety Report 15729605 (Version 1)
Quarter: 2018Q4

REPORT INFORMATION
  Report Type: Spontaneous
  Country: US (occurrence: US)
  Receive Date: 20181217
  Receipt Date: 20181217
  Transmission Date: 20190205
  Serious: No
  Sender: FDA-Public Use
  Company Number: US-PFIZER INC-2017243791

PATIENT
  Age: 67 Year
  Sex: Male
  Weight: 92.97 kg

DRUGS (1)
  1. GENOTROPIN [Suspect]
     Active Substance: SOMATROPIN
     Indication: PITUITARY GLAND OPERATION
     Dosage: 0.8 MG, ONCE A DAY

REACTIONS (20)
  - Red blood cell count increased [Unknown]
  - Blood urea decreased [Unknown]
  - Mean cell haemoglobin concentration decreased [Unknown]
  - Blood testosterone decreased [Unknown]
  - Intentional product use issue [Unknown]
  - Blood prolactin increased [Unknown]
  - Insulin-like growth factor increased [Unknown]
  - Mean cell haemoglobin decreased [Unknown]
  - Blood testosterone increased [Unknown]
  - Aspartate aminotransferase increased [Unknown]
  - Blood urea nitrogen/creatinine ratio decreased [Unknown]
  - White blood cell count increased [Unknown]
  - Incorrect dose administered [Unknown]
  - Mean cell volume decreased [Unknown]
  - Body mass index increased [Unknown]
  - Thyroxine free decreased [Unknown]
  - Device issue [Unknown]
  - Red cell distribution width increased [Unknown]
  - Thyroxine free increased [Unknown]
  - Blood glucose increased [Unknown]

NARRATIVE: CASE EVENT DATE: 20160728
